FAERS Safety Report 9585902 (Version 2)
Quarter: 2014Q2

REPORT INFORMATION
  Report Type: Spontaneous
  Country: US (occurrence: None)
  Receive Date: 20131001
  Receipt Date: 20140408
  Transmission Date: 20141212
  Serious: Yes (Other)
  Sender: FDA-Public Use
  Company Number: 2013-US-001092

PATIENT
  Age: 54 Year
  Sex: Female

DRUGS (1)
  1. XYREM [Suspect]
     Indication: SLEEP DISORDER
     Dates: start: 20090109, end: 2009

REACTIONS (4)
  - Surgery [None]
  - Hypersensitivity [None]
  - Abdominal operation [None]
  - Off label use [None]
